FAERS Safety Report 6580878-6 (Version None)
Quarter: 2010Q1

REPORT INFORMATION
  Report Type: 
  Country: None (occurrence: None)
  Receive Date: 20100215
  Receipt Date: 20100208
  Transmission Date: 20100710
  Serious: Yes (Life-Threatening, Hospitalization, Other)
  Sender: FDA-Public Use
  Company Number: FR-ELI_LILLY_AND_COMPANY-FR200911005995

PATIENT
  Sex: Male
  Weight: 100 kg

DRUGS (10)
  1. GEMZAR [Suspect]
     Indication: PLEURAL MESOTHELIOMA
     Dosage: 1250 MG/M2 (2500MG), OTHER (DAY 1)
     Route: 042
     Dates: start: 20091014, end: 20091014
  2. GEMZAR [Suspect]
     Dosage: 1250 MG/M2 (2500MG), OTHER (DAY 8)
     Route: 042
     Dates: start: 20091001, end: 20091001
  3. GEMZAR [Suspect]
     Dosage: 1250 MG/M2 (2500MG), OTHER (DAY 1)
     Route: 042
     Dates: start: 20091104, end: 20091104
  4. ALIMTA [Suspect]
     Indication: PLEURAL MESOTHELIOMA
     Dosage: UNK, UNKNOWN
     Route: 042
     Dates: start: 20090617, end: 20090902
  5. CARBOPLATIN [Concomitant]
     Dosage: UNK, UNKNOWN
     Route: 065
     Dates: start: 20090617, end: 20090902
  6. OXALIPLATIN [Concomitant]
     Indication: PLEURAL MESOTHELIOMA
     Dosage: UNK, OTHER (DAY 1)
     Route: 042
     Dates: start: 20091014, end: 20091014
  7. OXALIPLATIN [Concomitant]
     Dosage: UNK, OTHER (DAY 8)
     Route: 042
     Dates: start: 20091001, end: 20091001
  8. CORDARONE [Concomitant]
     Dosage: 200 D/F, DAILY (1/D)
     Route: 048
  9. CORTANCYL [Concomitant]
     Dosage: 20 D/F, 2/D
     Route: 048
  10. SKENAN [Concomitant]
     Dosage: UNK, UNKNOWN
     Route: 048

REACTIONS (3)
  - INTERSTITIAL LUNG DISEASE [None]
  - PLATELET COUNT ABNORMAL [None]
  - RESPIRATORY DISTRESS [None]
